FAERS Safety Report 7716014-X (Version None)
Quarter: 2011Q3

REPORT INFORMATION
  Report Type: 
  Country: None (occurrence: None)
  Receive Date: 20110812
  Receipt Date: 20110502
  Transmission Date: 20111222
  Serious: Yes (Hospitalization)
  Sender: FDA-Public Use
  Company Number: MEDI-0012924

PATIENT
  Age: 8 Month
  Sex: Female

DRUGS (4)
  1. VITAMIN TAB [Concomitant]
  2. OXYGEN (OXYGEN) [Concomitant]
  3. SYNAGIS [Suspect]
     Indication: PREMATURE BABY
     Dosage: INTRAMUSCULAR
     Route: 030
     Dates: start: 20101220, end: 20110128
  4. ZANTAC [Concomitant]

REACTIONS (1)
  - RESPIRATORY SYNCYTIAL VIRUS INFECTION [None]
